FAERS Safety Report 4846734-6 (Version None)
Quarter: 2005Q4

REPORT INFORMATION
  Report Type: 
  Country: None (occurrence: None)
  Receive Date: 20051206
  Receipt Date: 20051005
  Transmission Date: 20060501
  Serious: Yes (Hospitalization)
  Sender: FDA-Public Use
  Company Number: US-MERCK-0510USA04630

PATIENT
  Age: 57 Year
  Sex: Male
  Weight: 95 kg

DRUGS (7)
  1. VIOXX [Suspect]
     Indication: MYALGIA
     Route: 048
     Dates: start: 20000419, end: 20010802
  2. EFFEXOR [Concomitant]
     Route: 065
  3. DEPAKOTE [Concomitant]
     Route: 065
  4. PRILOSEC [Concomitant]
     Route: 065
  5. LORATADINE [Concomitant]
     Route: 065
  6. ALLEGRA [Concomitant]
     Route: 065
  7. FLONASE [Concomitant]
     Route: 065

REACTIONS (1)
  - CARDIOVASCULAR DISORDER [None]
